FAERS Safety Report 5625299-5 (Version None)
Quarter: 2008Q1

REPORT INFORMATION
  Report Type: 
  Country: None (occurrence: None)
  Receive Date: 20080213
  Receipt Date: 20080206
  Transmission Date: 20080703
  Serious: Yes (Other)
  Sender: FDA-Public Use
  Company Number: PHNU2007DE03848

PATIENT
  Sex: Male
  Weight: 90 kg

DRUGS (2)
  1. ZOMETA [Suspect]
     Indication: METASTASES TO BONE
     Dosage: 4 MG, QMO
     Route: 042
     Dates: start: 20070301, end: 20071001
  2. RADIOTHERAPY [Concomitant]
     Dosage: TOTAL DOSE 36 GY
     Dates: start: 20070301, end: 20070401

REACTIONS (3)
  - COMPUTERISED TOMOGRAM ABNORMAL [None]
  - OSTEONECROSIS [None]
  - TOOTH EXTRACTION [None]
